FAERS Safety Report 17456145 (Version 3)
Quarter: 2020Q2

REPORT INFORMATION
  Report Type: Spontaneous
  Country: US (occurrence: US)
  Receive Date: 20200225
  Receipt Date: 20200401
  Transmission Date: 20200713
  Serious: Yes (Other)
  Sender: FDA-Public Use
  Company Number: US-THROMBOGENICS INC-US-O18021-20-000001

PATIENT
  Age: 76 Year
  Sex: Female

DRUGS (1)
  1. JETREA [Suspect]
     Active Substance: OCRIPLASMIN
     Indication: VITREORETINAL TRACTION SYNDROME
     Dosage: 1 DOSAGE FORM, SINGLE
     Route: 031
     Dates: start: 20200127, end: 20200127

REACTIONS (15)
  - Photophobia [Not Recovered/Not Resolved]
  - Vitreous floaters [Recovered/Resolved]
  - Photopsia [Not Recovered/Not Resolved]
  - Blindness [Recovered/Resolved]
  - Altered visual depth perception [Not Recovered/Not Resolved]
  - Anxiety [Not Recovered/Not Resolved]
  - Depressed mood [Not Recovered/Not Resolved]
  - Vision blurred [Not Recovered/Not Resolved]
  - Visual impairment [Not Recovered/Not Resolved]
  - Night blindness [Not Recovered/Not Resolved]
  - Insomnia [Not Recovered/Not Resolved]
  - Visual snow syndrome [Not Recovered/Not Resolved]
  - Dyschromatopsia [Recovering/Resolving]
  - Vitreous floaters [Not Recovered/Not Resolved]
  - Impaired quality of life [Not Recovered/Not Resolved]

NARRATIVE: CASE EVENT DATE: 2020
